FAERS Safety Report 7129110-5 (Version None)
Quarter: 2010Q4

REPORT INFORMATION
  Report Type: 
  Country: None (occurrence: None)
  Receive Date: 20101130
  Receipt Date: 20101122
  Transmission Date: 20110411
  Serious: Yes (Hospitalization)
  Sender: FDA-Public Use
  Company Number: US-SANOFI-AVENTIS-2010SA071042

PATIENT
  Age: 70 Year
  Sex: Male

DRUGS (15)
  1. MULTAQ [Suspect]
     Indication: ATRIAL FIBRILLATION
     Route: 048
     Dates: start: 20091001, end: 20100101
  2. MULTAQ [Suspect]
     Route: 048
     Dates: start: 20100101
  3. INSULIN [Concomitant]
  4. PLAVIX [Concomitant]
  5. ALLOPURINOL [Concomitant]
  6. DIGOXIN [Concomitant]
  7. PRILOSEC [Concomitant]
  8. HUMALOG [Concomitant]
  9. LANTUS [Concomitant]
  10. ALTACE [Concomitant]
  11. HECTOROL [Concomitant]
  12. LIPITOR [Concomitant]
  13. DEMADEX [Concomitant]
  14. CLARITIN [Concomitant]
  15. COREG [Concomitant]

REACTIONS (5)
  - CARDIAC ARREST [None]
  - CEREBROVASCULAR ACCIDENT [None]
  - OFF LABEL USE [None]
  - RESPIRATORY FAILURE [None]
  - VENTRICULAR TACHYCARDIA [None]
